FAERS Safety Report 16479423 (Version 2)
Quarter: 2019Q3

REPORT INFORMATION
  Report Type: Report from Study
  Country: US (occurrence: US)
  Receive Date: 20190626
  Receipt Date: 20190709
  Transmission Date: 20191004
  Serious: Yes (Other)
  Sender: FDA-Public Use
  Company Number: US-BIOGEN-2019BI00753791

PATIENT
  Sex: Female

DRUGS (3)
  1. TECFIDERA [Suspect]
     Active Substance: DIMETHYL FUMARATE
     Indication: MULTIPLE SCLEROSIS
     Route: 065
     Dates: start: 20190307
  2. CYMBALTA [Concomitant]
     Active Substance: DULOXETINE HYDROCHLORIDE
     Indication: DEPRESSION
     Route: 048
  3. ABILIFY [Concomitant]
     Active Substance: ARIPIPRAZOLE
     Indication: DEPRESSION
     Route: 065

REACTIONS (10)
  - Anger [Unknown]
  - Antisocial behaviour [Unknown]
  - Spondylitis [Unknown]
  - Depression [Unknown]
  - Anxiety [Unknown]
  - Headache [Unknown]
  - Fatigue [Unknown]
  - Bursitis [Unknown]
  - Dry mouth [Unknown]
  - Neuralgia [Unknown]
